FAERS Safety Report 7717357-6 (Version None)
Quarter: 2011Q3

REPORT INFORMATION
  Report Type: 
  Country: None (occurrence: None)
  Receive Date: 20110830
  Receipt Date: 20110820
  Transmission Date: 20111222
  Serious: Yes (Other)
  Sender: FDA-Public Use
  Company Number: US-JNJFOC-20110707166

PATIENT
  Sex: Male

DRUGS (4)
  1. PREDNISONE [Concomitant]
  2. REMICADE [Suspect]
     Indication: COLITIS ULCERATIVE
     Route: 042
     Dates: start: 20110712
  3. DEPAKOTE [Concomitant]
  4. LIALDA [Concomitant]

REACTIONS (9)
  - DYSPNOEA [None]
  - COLD SWEAT [None]
  - PALLOR [None]
  - CHEST PAIN [None]
  - INFUSION RELATED REACTION [None]
  - PALPITATIONS [None]
  - HEADACHE [None]
  - PAIN [None]
  - FEELING COLD [None]
